FAERS Safety Report 4474712-8 (Version None)
Quarter: 2004Q4

REPORT INFORMATION
  Report Type: 
  Country: None (occurrence: None)
  Receive Date: 20041012
  Receipt Date: 20040929
  Transmission Date: 20050328
  Serious: Yes (Hospitalization)
  Sender: FDA-Public Use
  Company Number: STA-AE-04-MTX-382

PATIENT
  Age: 68 Year
  Sex: Female

DRUGS (4)
  1. LANTAREL (METHOTREXATE, INJECTION) [Suspect]
     Indication: RHEUMATOID ARTHRITIS
     Dosage: 15 MG 1X PER 1 WK, SC
     Route: 058
     Dates: start: 19970101
  2. ENBREL [Suspect]
     Indication: RHEUMATOID ARTHRITIS
     Dosage: SC
     Route: 058
     Dates: start: 20011001
  3. PREDNISOLONE [Suspect]
     Indication: RHEUMATOID ARTHRITIS
     Dosage: 5 MG 1X PER 1 DAY, ORAL
     Route: 048
  4. VOLTAREN [Concomitant]

REACTIONS (2)
  - BURSITIS [None]
  - WOUND INFECTION [None]
